FAERS Safety Report 4553203-X (Version None)
Quarter: 2005Q1

REPORT INFORMATION
  Report Type: 
  Country: None (occurrence: None)
  Receive Date: 20050112
  Receipt Date: 20041229
  Transmission Date: 20050727
  Serious: Yes (Hospitalization)
  Sender: FDA-Public Use
  Company Number: USA041079899

PATIENT
  Age: 58 Year
  Sex: Female
  Weight: 64 kg

DRUGS (5)
  1. FORTEO [Suspect]
     Indication: OSTEOPOROSIS
     Dosage: 20 UG/1 DAY
     Dates: start: 20040922, end: 20041014
  2. CALCIUM CARBONATE [Concomitant]
  3. FLORINEF [Concomitant]
  4. PREDNISONE [Concomitant]
  5. IBUPROFEN [Concomitant]

REACTIONS (9)
  - AMNESIA [None]
  - BLOOD CALCIUM INCREASED [None]
  - FATIGUE [None]
  - HALLUCINATION, VISUAL [None]
  - HEADACHE [None]
  - MEMORY IMPAIRMENT [None]
  - PHARMACEUTICAL PRODUCT COMPLAINT [None]
  - SPEECH DISORDER [None]
  - VISUAL DISTURBANCE [None]
